FAERS Safety Report 20033443 (Version 1)
Quarter: 2021Q4

REPORT INFORMATION
  Report Type: Spontaneous
  Country: US (occurrence: US)
  Receive Date: 20211104
  Receipt Date: 20211104
  Transmission Date: 20220303
  Serious: Yes (Hospitalization, Other)
  Sender: FDA-Public Use
  Company Number: US-ALLERGAN-2125463US

PATIENT
  Sex: Female

DRUGS (2)
  1. BOTOX [Suspect]
     Active Substance: ONABOTULINUMTOXINA
     Indication: Migraine
     Dosage: UNK, SINGLE
     Dates: start: 202007, end: 202007
  2. NEURONTIN [Concomitant]
     Active Substance: GABAPENTIN
     Indication: Migraine

REACTIONS (13)
  - Myocardial infarction [Unknown]
  - Adverse event [Unknown]
  - Adverse event [Unknown]
  - Feeling abnormal [Unknown]
  - Psychomotor skills impaired [Unknown]
  - Memory impairment [Unknown]
  - Impaired quality of life [Unknown]
  - Balance disorder [Unknown]
  - Palpitations [Unknown]
  - Syncope [Not Recovered/Not Resolved]
  - Dizziness [Unknown]
  - Hypoaesthesia [Unknown]
  - Vision blurred [Unknown]
